FAERS Safety Report 23539104 (Version 1)
Quarter: 2024Q1

REPORT INFORMATION
  Report Type: Spontaneous
  Country: FR (occurrence: FR)
  Receive Date: 20240219
  Receipt Date: 20240219
  Transmission Date: 20240410
  Serious: Yes (Hospitalization)
  Sender: FDA-Public Use
  Company Number: None

PATIENT
  Age: 45 Year
  Sex: Female

DRUGS (8)
  1. MIDOSTAURIN [Suspect]
     Active Substance: MIDOSTAURIN
     Indication: Product used for unknown indication
     Dosage: 100 MG, QD
     Route: 048
     Dates: start: 20231115, end: 20231121
  2. CYTARABINE [Suspect]
     Active Substance: CYTARABINE
     Indication: Acute myeloid leukaemia
     Dosage: 400 MG, QD (100MG/ML)
     Route: 042
     Dates: start: 20231109, end: 20231113
  3. CYTARABINE [Suspect]
     Active Substance: CYTARABINE
     Dosage: 400 MG, QD (100 MG/ML)
     Route: 042
     Dates: start: 20231107, end: 20231108
  4. DAUNORUBICIN [Suspect]
     Active Substance: DAUNORUBICIN
     Indication: Acute myeloid leukaemia
     Dosage: 180 MG, QD
     Route: 042
     Dates: start: 20231108, end: 20231110
  5. ACYCLOVIR [Concomitant]
     Active Substance: ACYCLOVIR
     Indication: Product used for unknown indication
     Dosage: 250 MG, Q8H
     Route: 042
     Dates: start: 20231118, end: 20231121
  6. PIPERACILLIN SODIUM\TAZOBACTAM SODIUM [Concomitant]
     Active Substance: PIPERACILLIN SODIUM\TAZOBACTAM SODIUM
     Indication: Infection
     Dosage: 16 G, QD ( 4 G/500 MG)
     Route: 042
     Dates: start: 20231109, end: 20231121
  7. LINEZOLID [Concomitant]
     Active Substance: LINEZOLID
     Indication: Infection
     Dosage: 1.2 G, QD
     Route: 042
     Dates: start: 20231109, end: 20231125
  8. AMPHOTERICIN B [Concomitant]
     Active Substance: AMPHOTERICIN B
     Indication: Infection
     Dosage: 250 MG, Q24H (POWDER FOR SUSPENSION OF LIPOSOMES FOR INFUSION)
     Route: 042
     Dates: start: 20231117, end: 20231121

REACTIONS (1)
  - Neutropenic colitis [Recovering/Resolving]

NARRATIVE: CASE EVENT DATE: 20231122
